FAERS Safety Report 14971865 (Version 4)
Quarter: 2019Q2

REPORT INFORMATION
  Report Type: Report from Study
  Country: JP (occurrence: JP)
  Receive Date: 20180605
  Receipt Date: 20190614
  Transmission Date: 20190711
  Serious: Yes (Hospitalization, Other)
  Sender: FDA-Public Use
  Company Number: JP-CONCORDIA PHARMACEUTICALS INC.-GSH201806-001893

PATIENT
  Age: 19 Year
  Sex: Female
  Weight: 66 kg

DRUGS (15)
  1. PLAQUENIL [Suspect]
     Active Substance: HYDROXYCHLOROQUINE SULFATE
     Indication: SYSTEMIC LUPUS ERYTHEMATOSUS
     Route: 048
     Dates: start: 20170501
  2. NEORAL [Concomitant]
     Active Substance: CYCLOSPORINE
     Indication: SYSTEMIC LUPUS ERYTHEMATOSUS
     Dates: end: 20180130
  3. FERROUS SODIUM CITRATE [Concomitant]
     Active Substance: SODIUM FERROUS CITRATE
     Indication: PRODUCT USED FOR UNKNOWN INDICATION
     Dates: start: 20180201
  4. PARIET [Concomitant]
     Active Substance: RABEPRAZOLE SODIUM
     Indication: PROPHYLAXIS
  5. EDIROL [Concomitant]
     Active Substance: ELDECALCITOL
     Indication: INVESTIGATION
  6. FERROUS SODIUM CITRATE [Concomitant]
     Active Substance: SODIUM FERROUS CITRATE
     Indication: IRON DEFICIENCY ANAEMIA
  7. CELLCEPT [Concomitant]
     Active Substance: MYCOPHENOLATE MOFETIL\MYCOPHENOLATE MOFETIL HYDROCHLORIDE
     Indication: SYSTEMIC LUPUS ERYTHEMATOSUS
     Dates: start: 20171023, end: 20171203
  8. PARIET [Concomitant]
     Active Substance: RABEPRAZOLE SODIUM
     Indication: INVESTIGATION
  9. BAKTAR [Concomitant]
     Active Substance: SULFAMETHOXAZOLE\TRIMETHOPRIM
     Indication: INVESTIGATION
  10. BAKTAR [Concomitant]
     Active Substance: SULFAMETHOXAZOLE\TRIMETHOPRIM
     Indication: PROPHYLAXIS
     Dates: start: 20180205
  11. PLAQUENIL [Suspect]
     Active Substance: HYDROXYCHLOROQUINE SULFATE
     Route: 048
     Dates: start: 20170501
  12. PREDONINE [Concomitant]
     Active Substance: PREDNISOLONE
     Dates: start: 20170626
  13. MICARDIS [Concomitant]
     Active Substance: TELMISARTAN
     Indication: PRODUCT USED FOR UNKNOWN INDICATION
  14. EDIROL [Concomitant]
     Active Substance: ELDECALCITOL
     Indication: PROPHYLAXIS
  15. PREDONINE [Concomitant]
     Active Substance: PREDNISOLONE
     Indication: SYSTEMIC LUPUS ERYTHEMATOSUS
     Dates: end: 20170625

REACTIONS (1)
  - Lupus nephritis [Recovering/Resolving]

NARRATIVE: CASE EVENT DATE: 201709
